FAERS Safety Report 4912598-5 (Version None)
Quarter: 2006Q1

REPORT INFORMATION
  Report Type: 
  Country: None (occurrence: None)
  Receive Date: 20060215
  Receipt Date: 20060207
  Transmission Date: 20060701
  Serious: Yes (Other)
  Sender: FDA-Public Use
  Company Number: NL-GLAXOSMITHKLINE-B0410263A

PATIENT
  Age: 40 Year
  Sex: Female

DRUGS (2)
  1. ADVAIR HFA [Suspect]
     Indication: MUCOUS MEMBRANE DISORDER
     Dosage: 50MCG TWICE PER DAY
     Route: 055
  2. ANTIBIOTIC [Concomitant]
     Route: 065

REACTIONS (1)
  - RESPIRATORY TRACT HAEMORRHAGE [None]
